FAERS Safety Report 6390501-1 (Version None)
Quarter: 2009Q4

REPORT INFORMATION
  Report Type: 
  Country: None (occurrence: None)
  Receive Date: 20091003
  Receipt Date: 20090916
  Transmission Date: 20100525
  Serious: Yes (Death, Hospitalization)
  Sender: FDA-Public Use
  Company Number: APP200900614

PATIENT
  Age: 49 Year
  Sex: Male

DRUGS (5)
  1. ETOPOSIDE [Suspect]
     Indication: SMALL CELL LUNG CANCER STAGE UNSPECIFIED
     Dosage: 100 MG/M2, DAYS 1-3
  2. CISPLATIN [Suspect]
     Indication: SMALL CELL LUNG CANCER STAGE UNSPECIFIED
     Dosage: 100 MG/M2, DAY 2
  3. CYCLOPHOSPHAMIDE [Suspect]
     Indication: SMALL CELL LUNG CANCER STAGE UNSPECIFIED
     Dosage: 400 MG/M2, DAYS 1-3
  4. ADRIAMYCIN PFS [Suspect]
     Indication: SMALL CELL LUNG CANCER STAGE UNSPECIFIED
     Dosage: 40 MG/M2, DAY 1
  5. VINCRISTINE [Suspect]
     Indication: SMALL CELL LUNG CANCER STAGE UNSPECIFIED
     Dosage: 2 MG, DAY 3

REACTIONS (8)
  - ACUTE HEPATIC FAILURE [None]
  - FEBRILE NEUTROPENIA [None]
  - HEPATIC FIBROSIS [None]
  - HEPATITIS B [None]
  - HEPATITIS CHOLESTATIC [None]
  - MEDIASTINUM NEOPLASM [None]
  - NEUTROPENIA [None]
  - THROMBOCYTOPENIA [None]
